FAERS Safety Report 5227360-6 (Version None)
Quarter: 2007Q1

REPORT INFORMATION
  Report Type: 
  Country: None (occurrence: None)
  Receive Date: 20070202
  Receipt Date: 20070126
  Transmission Date: 20070707
  Serious: Yes (Death)
  Sender: FDA-Public Use
  Company Number: DE-ABBOTT-07P-062-0356237-00

PATIENT
  Sex: Male
  Weight: 77 kg

DRUGS (12)
  1. HUMIRA [Suspect]
     Indication: RHEUMATOID ARTHRITIS
     Route: 058
     Dates: start: 20040604, end: 20061206
  2. DICLOFENAC SODIUM [Concomitant]
     Indication: RHEUMATOID ARTHRITIS
     Route: 048
     Dates: start: 20020101, end: 20070116
  3. ALDRONSAMINE [Concomitant]
     Indication: OSTEOPOROSIS
     Route: 048
     Dates: start: 20020225, end: 20070116
  4. CALCIUM [Concomitant]
     Indication: OSTEOPOROSIS
     Route: 048
     Dates: start: 20020225, end: 20070116
  5. COLECALCIFEROL [Concomitant]
     Indication: OSTEOPOROSIS
     Route: 048
     Dates: start: 20020101, end: 20070116
  6. VOLTAREN [Concomitant]
     Indication: RHEUMATOID ARTHRITIS
     Route: 048
     Dates: start: 20020201
  7. PANTOPRAZOLE SODIUM [Concomitant]
     Indication: PROPHYLAXIS AGAINST GASTROINTESTINAL ULCER
     Route: 048
     Dates: start: 20020225
  8. TOPIRAMATE [Concomitant]
     Route: 048
     Dates: start: 20020201
  9. FOLIC ACID [Concomitant]
     Dates: start: 20020201, end: 20040101
  10. ALENDRONATE SODIUM [Concomitant]
     Indication: OSTEOPOROSIS
     Route: 048
     Dates: start: 20020311, end: 20050301
  11. ALENDRONATE SODIUM [Concomitant]
     Route: 048
     Dates: start: 20050301
  12. VIGANTOLETTEN [Concomitant]
     Indication: OSTEOPOROSIS
     Route: 048
     Dates: start: 20041101

REACTIONS (1)
  - CORONARY ARTERY OCCLUSION [None]
